FAERS Safety Report 6444154-4 (Version None)
Quarter: 2009Q4

REPORT INFORMATION
  Report Type: 
  Country: None (occurrence: None)
  Receive Date: 20091118
  Receipt Date: 20091112
  Transmission Date: 20100525
  Serious: Yes (Death)
  Sender: FDA-Public Use
  Company Number: US-JNJFOC-20080705018

PATIENT
  Sex: Female

DRUGS (12)
  1. FENTANYL CITRATE [Suspect]
     Indication: PAIN
     Dosage: TWO 100 UG/HR PATCHES
     Route: 062
  2. ACETAMINOPHEN [Suspect]
     Route: 065
  3. ACETAMINOPHEN [Suspect]
     Indication: DRUG USE FOR UNKNOWN INDICATION
     Route: 065
  4. ALPRAZOLAM [Concomitant]
  5. DEXTROMETHORPHAN HYDROBROMIDE [Concomitant]
  6. DIAZEPAM [Concomitant]
  7. DIPHENHYDRAMINE HCL [Concomitant]
  8. DOXYLAMINE SUCCINATE [Concomitant]
  9. MIRTAZAPINE [Concomitant]
  10. TRAZODONE HCL [Concomitant]
  11. ZOLPIDEM [Concomitant]
  12. SYNTHROID [Concomitant]
     Route: 065

REACTIONS (1)
  - DRUG TOXICITY [None]
